FAERS Safety Report 7774534-6 (Version None)
Quarter: 2011Q3

REPORT INFORMATION
  Report Type: 
  Country: None (occurrence: None)
  Receive Date: 20110923
  Receipt Date: 20110923
  Transmission Date: 20111222
  Serious: Yes (Life-Threatening)
  Sender: FDA-Public Use
  Company Number: None

PATIENT
  Age: 63 Year
  Sex: Male
  Weight: 97.522 kg

DRUGS (1)
  1. ALEVE [Suspect]
     Indication: ARTHRITIS
     Dosage: 2 TABLETS
     Route: 048
     Dates: start: 20110919, end: 20110919

REACTIONS (6)
  - LIP SWELLING [None]
  - SWOLLEN TONGUE [None]
  - HYPERSENSITIVITY [None]
  - DYSPHAGIA [None]
  - SHOCK [None]
  - DYSPNOEA [None]
